FAERS Safety Report 6552712-1 (Version None)
Quarter: 2010Q1

REPORT INFORMATION
  Report Type: 
  Country: None (occurrence: None)
  Receive Date: 20100126
  Receipt Date: 20100114
  Transmission Date: 20100710
  Serious: Yes (Hospitalization, Other)
  Sender: FDA-Public Use
  Company Number: US-ELI_LILLY_AND_COMPANY-US200911002717

PATIENT
  Sex: Male

DRUGS (3)
  1. ADCIRCA [Suspect]
     Indication: PULMONARY ARTERIAL HYPERTENSION
     Dosage: 40 MG, UNK
     Dates: start: 20090929, end: 20091019
  2. ADCIRCA [Suspect]
     Dosage: 20 MG, DAILY (1/D)
     Dates: start: 20091020, end: 20091030
  3. OXYGEN [Concomitant]
     Indication: HYPOXIA

REACTIONS (5)
  - DYSPNOEA [None]
  - EPISTAXIS [None]
  - FALL [None]
  - HYPOTENSION [None]
  - SYNCOPE [None]
